FAERS Safety Report 15331669 (Version 1)
Quarter: 2018Q3

REPORT INFORMATION
  Report Type: Report from Study
  Country: DE (occurrence: DE)
  Receive Date: 20180829
  Receipt Date: 20180829
  Transmission Date: 20181010
  Serious: Yes (Other)
  Sender: FDA-Public Use
  Company Number: DE-AMGEN-DEUNI2018117937

PATIENT
  Age: 47 Year
  Sex: Female
  Weight: 69 kg

DRUGS (12)
  1. PANITUMUMAB [Suspect]
     Active Substance: PANITUMUMAB
     Indication: COLORECTAL CANCER METASTATIC
     Dosage: 414 MG, UNK
     Route: 042
     Dates: start: 20180807
  2. DERMATOP [Concomitant]
     Active Substance: PREDNICARBATE
     Dosage: 2.5 MG, AS NECESSARY
     Route: 061
     Dates: start: 20180807
  3. DEXA [Concomitant]
     Indication: NAUSEA
     Dosage: 8 MG, PC
     Route: 042
     Dates: start: 20180807
  4. FOLINIC ACID [Suspect]
     Active Substance: LEUCOVORIN
     Indication: COLORECTAL CANCER METASTATIC
     Dosage: 748 MG, UNK
     Route: 065
     Dates: start: 20180807
  5. FLUOROURACIL. [Suspect]
     Active Substance: FLUOROURACIL
     Indication: COLORECTAL CANCER METASTATIC
     Dosage: 748 MG, UNK
     Route: 040
     Dates: start: 20180807
  6. FLUOROURACIL. [Suspect]
     Active Substance: FLUOROURACIL
     Dosage: 4488 MG, UNK
     Route: 042
     Dates: start: 20180807
  7. DOXYDERMA [Concomitant]
     Dosage: 100 MG, BID
     Route: 048
     Dates: start: 20180807
  8. ONDANSETRON [Concomitant]
     Active Substance: ONDANSETRON
     Indication: NAUSEA
     Dosage: 8 MG, PC
     Route: 042
     Dates: start: 20180807
  9. TARGIN [Concomitant]
     Active Substance: NALOXONE HYDROCHLORIDE\OXYCODONE HYDROCHLORIDE
     Indication: PAIN
     Dosage: 10 MG, BID
     Route: 048
     Dates: start: 20180703
  10. PANITUMUMAB [Suspect]
     Active Substance: PANITUMUMAB
     Dosage: UNK
     Route: 042
  11. IRINOTECAN [Suspect]
     Active Substance: IRINOTECAN
     Indication: COLORECTAL CANCER METASTATIC
     Dosage: 336 MG, UNK
     Route: 065
     Dates: start: 20180807
  12. NOVAMINSULFON [Concomitant]
     Active Substance: METAMIZOLE
     Indication: PAIN
     Dosage: 1000 MG, QID
     Route: 048
     Dates: start: 20180807

REACTIONS (1)
  - Face crushing [Not Recovered/Not Resolved]

NARRATIVE: CASE EVENT DATE: 20180814
